FAERS Safety Report 23392763 (Version 1)
Quarter: 2024Q1

REPORT INFORMATION
  Report Type: Spontaneous
  Country: US (occurrence: None)
  Receive Date: 20240111
  Receipt Date: 20240111
  Transmission Date: 20240410
  Serious: Yes (Hospitalization)
  Sender: FDA-Public Use
  Company Number: None

PATIENT
  Sex: Female

DRUGS (1)
  1. OPSUMIT [Suspect]
     Active Substance: MACITENTAN
     Indication: Pulmonary arterial hypertension
     Dosage: FREQUENCY : DAILY;?
     Route: 048
     Dates: start: 202307

REACTIONS (10)
  - Renal impairment [None]
  - Blood sodium decreased [None]
  - Blood magnesium decreased [None]
  - Cough [None]
  - Oedema peripheral [None]
  - Headache [None]
  - Nausea [None]
  - Dyspnoea exertional [None]
  - Blood pressure fluctuation [None]
  - Fatigue [None]
